FAERS Safety Report 8608543-1 (Version None)
Quarter: 2012Q3

REPORT INFORMATION
  Report Type: 
  Country: None (occurrence: None)
  Receive Date: 20120809
  Receipt Date: 20120809
  Transmission Date: 20120928
  Serious: Yes (Death)
  Sender: FDA-Public Use
  Company Number: None

PATIENT
  Age: 58 Year
  Sex: Female

DRUGS (1)
  1. CYMBALTA [Suspect]
     Indication: FIBROMYALGIA
     Dosage: ABOUT TWO YEARS

REACTIONS (4)
  - COMPLETED SUICIDE [None]
  - SUDDEN DEATH [None]
  - DIZZINESS [None]
  - FALL [None]
